FAERS Safety Report 8418336-6 (Version None)
Quarter: 2012Q2

REPORT INFORMATION
  Report Type: 
  Country: None (occurrence: None)
  Receive Date: 20120607
  Receipt Date: 20120602
  Transmission Date: 20120825
  Serious: Yes (Hospitalization)
  Sender: FDA-Public Use
  Company Number: US-AMGEN-USASP2012034899

PATIENT
  Age: 58 Year
  Sex: Female

DRUGS (1)
  1. ENBREL [Suspect]
     Indication: RHEUMATOID ARTHRITIS
     Dosage: 50 MG, QWK
     Dates: start: 20051107, end: 20120401

REACTIONS (9)
  - INGROWING NAIL [None]
  - INSOMNIA [None]
  - FOOT DEFORMITY [None]
  - MUSCULOSKELETAL STIFFNESS [None]
  - RHEUMATOID ARTHRITIS [None]
  - LOWER EXTREMITY MASS [None]
  - KNEE ARTHROPLASTY [None]
  - PAIN IN EXTREMITY [None]
  - ACTIVITIES OF DAILY LIVING IMPAIRED [None]
